FAERS Safety Report 6817073-9 (Version None)
Quarter: 2010Q3

REPORT INFORMATION
  Report Type: 
  Country: None (occurrence: None)
  Receive Date: 20100706
  Receipt Date: 20100628
  Transmission Date: 20110219
  Serious: Yes (Hospitalization)
  Sender: FDA-Public Use
  Company Number: FR-ROCHE-712711

PATIENT
  Sex: Female

DRUGS (4)
  1. AVASTIN [Suspect]
     Indication: RECTOSIGMOID CANCER
     Route: 042
  2. FLUOROURACIL [Suspect]
     Indication: RECTOSIGMOID CANCER
     Route: 042
     Dates: start: 20090622
  3. FOLINIC ACID [Concomitant]
     Dates: start: 20090622
  4. IRINOTECAN HCL [Concomitant]
     Dates: start: 20090622

REACTIONS (1)
  - AGRANULOCYTOSIS [None]
